FAERS Safety Report 25980326 (Version 1)
Quarter: 2025Q4

REPORT INFORMATION
  Report Type: Spontaneous
  Country: US (occurrence: US)
  Receive Date: 20251030
  Receipt Date: 20251030
  Transmission Date: 20260117
  Serious: No
  Sender: LNHC, INC.
  Company Number: US-LNHC, INC.-2025PEL00023

PATIENT
  Sex: Female

DRUGS (1)
  1. ZELSUVMI [Suspect]
     Active Substance: BERDAZIMER SODIUM
     Indication: Molluscum contagiosum
     Route: 061

REACTIONS (4)
  - Application site pain [Unknown]
  - Application site pruritus [Unknown]
  - Application site erythema [Unknown]
  - Wrong technique in product usage process [Recovered/Resolved]
